FAERS Safety Report 23654794 (Version 2)
Quarter: 2024Q2

REPORT INFORMATION
  Report Type: Spontaneous
  Country: GB (occurrence: GB)
  Receive Date: 20240320
  Receipt Date: 20240508
  Transmission Date: 20240715
  Serious: Yes (Hospitalization, Other)
  Sender: FDA-Public Use
  Company Number: None

PATIENT
  Age: 68 Year
  Sex: Female
  Weight: 92 kg

DRUGS (81)
  1. OMEPRAZOLE [Suspect]
     Active Substance: DONEPEZIL HYDROCHLORIDE\OMEPRAZOLE\OMEPRAZOLE MAGNESIUM
     Indication: Abdominal discomfort
     Dosage: 40 MG, QD
     Route: 065
     Dates: start: 20100917
  2. OMEPRAZOLE [Suspect]
     Active Substance: DONEPEZIL HYDROCHLORIDE\OMEPRAZOLE\OMEPRAZOLE MAGNESIUM
     Dosage: 20 MG, QD
     Route: 065
     Dates: start: 20100917
  3. OMEPRAZOLE [Suspect]
     Active Substance: DONEPEZIL HYDROCHLORIDE\OMEPRAZOLE\OMEPRAZOLE MAGNESIUM
     Dosage: 80 MG, QD
     Route: 065
     Dates: start: 20100917
  4. OMEPRAZOLE [Suspect]
     Active Substance: DONEPEZIL HYDROCHLORIDE\OMEPRAZOLE\OMEPRAZOLE MAGNESIUM
     Dosage: 80 MG, QD (BATCH AND LOT TESTED AND FOUND)
     Route: 065
     Dates: start: 20100917
  5. OMEPRAZOLE [Suspect]
     Active Substance: DONEPEZIL HYDROCHLORIDE\OMEPRAZOLE\OMEPRAZOLE MAGNESIUM
     Dosage: 20 MG, QD (BATCH AND LOT TESTED AND FOUND WITHIN SPECIFICATIONS, MEDICATION ERROR, MISUSE)
     Route: 065
     Dates: start: 20100917
  6. OMEPRAZOLE [Suspect]
     Active Substance: DONEPEZIL HYDROCHLORIDE\OMEPRAZOLE\OMEPRAZOLE MAGNESIUM
     Dosage: 20 MG, BID
     Route: 065
  7. OMEPRAZOLE [Suspect]
     Active Substance: DONEPEZIL HYDROCHLORIDE\OMEPRAZOLE\OMEPRAZOLE MAGNESIUM
     Dosage: 20 MG, QH  (480 MILLIGRAM DAILY; 20 MG, 2X/DAY)
     Route: 065
  8. OMEPRAZOLE [Suspect]
     Active Substance: DONEPEZIL HYDROCHLORIDE\OMEPRAZOLE\OMEPRAZOLE MAGNESIUM
     Dosage: 20 MG, QD
     Route: 065
  9. OMEPRAZOLE [Suspect]
     Active Substance: DONEPEZIL HYDROCHLORIDE\OMEPRAZOLE\OMEPRAZOLE MAGNESIUM
     Dosage: 20 MG, QD (BATCH AND LOT TESTED AND FOUND WITHIN SPECIFICATIONS, MEDICATION ERROR, MISUSE)
     Route: 065
     Dates: start: 20200917
  10. OMEPRAZOLE [Suspect]
     Active Substance: DONEPEZIL HYDROCHLORIDE\OMEPRAZOLE\OMEPRAZOLE MAGNESIUM
     Dosage: 80 MG, QD
     Route: 065
     Dates: start: 20200917
  11. OMEPRAZOLE [Suspect]
     Active Substance: DONEPEZIL HYDROCHLORIDE\OMEPRAZOLE\OMEPRAZOLE MAGNESIUM
     Dosage: 80 MG, QD
     Route: 065
  12. AMOXICILLIN [Suspect]
     Active Substance: AMOXICILLIN
     Indication: Abdominal discomfort
     Dosage: UNK (125 MG/ 5 ML)
     Route: 065
     Dates: start: 20210904
  13. AMOXICILLIN [Suspect]
     Active Substance: AMOXICILLIN
     Dosage: UNK (125 MG/ 5 ML)
     Route: 065
  14. METHOTREXATE [Suspect]
     Active Substance: METHOTREXATE
     Indication: Rheumatoid arthritis
     Dosage: 18 MG, QW (UNK UNK, WEEKLY (AT 17.5, WEEKLY)
     Route: 065
     Dates: start: 20100917
  15. METHOTREXATE [Suspect]
     Active Substance: METHOTREXATE
     Dosage: 18 MG, QW
     Route: 065
  16. METHOTREXATE [Suspect]
     Active Substance: METHOTREXATE
     Dosage: UNK, QW
     Route: 065
  17. METHOTREXATE [Suspect]
     Active Substance: METHOTREXATE
     Dosage: UNK
     Route: 065
  18. METHOTREXATE [Suspect]
     Active Substance: METHOTREXATE
     Dosage: 17.5 MG, QW
     Route: 065
     Dates: start: 20100917
  19. IRBESARTAN [Suspect]
     Active Substance: IRBESARTAN
     Indication: Rheumatoid arthritis
     Dosage: 150 G, QD (1 DOSE PER 1 D)
     Route: 065
     Dates: start: 20100912
  20. IRBESARTAN [Suspect]
     Active Substance: IRBESARTAN
     Dosage: 150 MG, QD
     Route: 065
     Dates: start: 20100917
  21. IRBESARTAN [Suspect]
     Active Substance: IRBESARTAN
     Dosage: 150 MG, QD
     Route: 065
     Dates: start: 20100917
  22. VENLAFAXINE HYDROCHLORIDE [Suspect]
     Active Substance: VENLAFAXINE HYDROCHLORIDE
     Indication: Depression
     Dosage: 225 MG, QD (PROLONGED RELEASE,225 MG, DAILY)
     Route: 065
  23. VENLAFAXINE HYDROCHLORIDE [Suspect]
     Active Substance: VENLAFAXINE HYDROCHLORIDE
     Indication: Rheumatoid arthritis
  24. CARBAMAZEPINE [Suspect]
     Active Substance: CARBAMAZEPINE
     Indication: Depression
     Dosage: 750 MG, QD (1 DOSE PER 1 D)
     Route: 065
     Dates: start: 20100917
  25. CARBAMAZEPINE [Suspect]
     Active Substance: CARBAMAZEPINE
     Indication: Product used for unknown indication
     Dosage: 750 MG, QD
     Route: 065
     Dates: start: 20200917
  26. CARBAMAZEPINE [Suspect]
     Active Substance: CARBAMAZEPINE
     Dosage: 750 MG, QD (1 DOSE PER 1 D)
     Route: 065
     Dates: start: 20210917
  27. CARBAMAZEPINE [Suspect]
     Active Substance: CARBAMAZEPINE
     Dosage: UNK
     Route: 065
  28. CARBAMAZEPINE [Suspect]
     Active Substance: CARBAMAZEPINE
     Dosage: 750 MG, QD
     Route: 065
  29. THEOPHYLLINE [Suspect]
     Active Substance: THEOPHYLLINE
     Indication: Abdominal discomfort
     Dosage: 750 MG, QD
     Route: 065
  30. THEOPHYLLINE [Suspect]
     Active Substance: THEOPHYLLINE
     Indication: Depression
  31. CIPROFLOXACIN HYDROCHLORIDE [Suspect]
     Active Substance: CIPROFLOXACIN HYDROCHLORIDE
     Indication: Depression
     Dosage: UNK
     Route: 065
  32. CIPROFLOXACIN HYDROCHLORIDE [Suspect]
     Active Substance: CIPROFLOXACIN HYDROCHLORIDE
     Indication: Product used for unknown indication
     Dosage: 1000 MG, QD
     Route: 065
  33. CIPROFLOXACIN HYDROCHLORIDE [Suspect]
     Active Substance: CIPROFLOXACIN HYDROCHLORIDE
     Indication: Abdominal discomfort
     Dosage: 1000 MG, QD
     Route: 065
     Dates: start: 20100917
  34. CIPROFLOXACIN HYDROCHLORIDE [Suspect]
     Active Substance: CIPROFLOXACIN HYDROCHLORIDE
     Indication: Rheumatoid arthritis
     Dosage: 1000 MG, QD
     Route: 065
     Dates: start: 20200917
  35. VENLAFAXINE [Suspect]
     Active Substance: VENLAFAXINE HYDROCHLORIDE
     Indication: Rheumatoid arthritis
     Dosage: 225 MG, QD
     Route: 065
  36. VENLAFAXINE [Suspect]
     Active Substance: VENLAFAXINE HYDROCHLORIDE
     Indication: Depression
  37. PHYLLOCONTIN [Suspect]
     Active Substance: AMINOPHYLLINE
     Indication: Product used for unknown indication
     Dosage: 400 MG, QD
     Route: 065
     Dates: start: 20100917
  38. PHYLLOCONTIN [Suspect]
     Active Substance: AMINOPHYLLINE
     Dosage: 400 MG, QD
     Route: 065
     Dates: start: 20200917
  39. GUANIDINE [Suspect]
     Active Substance: GUANIDINE
     Indication: Abdominal discomfort
     Dosage: 750 MG (1,3-DIPHENYLGUANIDINE)
     Route: 065
  40. GUANIDINE [Suspect]
     Active Substance: GUANIDINE
     Indication: Depression
     Dosage: UNK, QD (1,3-DIPHENYLGUANIDINE)
     Route: 065
  41. GUANIDINE [Suspect]
     Active Substance: GUANIDINE
     Dosage: 750 MG, QD
     Route: 065
  42. CARBOCYSTEINE [Suspect]
     Active Substance: CARBOCYSTEINE
     Indication: Depression
     Dosage: 750 MG
     Route: 065
  43. CARBOCYSTEINE [Suspect]
     Active Substance: CARBOCYSTEINE
     Indication: Rheumatoid arthritis
     Dosage: 750 MG, QD
     Route: 065
     Dates: start: 20100917
  44. CARBOCYSTEINE [Suspect]
     Active Substance: CARBOCYSTEINE
     Dosage: 750 MG, QD
     Route: 065
     Dates: start: 20120917
  45. CARBOCYSTEINE [Suspect]
     Active Substance: CARBOCYSTEINE
     Dosage: 750 MG, QD
     Route: 065
     Dates: start: 20200917
  46. CARBOCYSTEINE [Suspect]
     Active Substance: CARBOCYSTEINE
     Dosage: 750 MG, QD
     Route: 065
     Dates: start: 20210917
  47. ZINC [Suspect]
     Active Substance: PYRITHIONE ZINC\ZINC\ZINC CHLORIDE
     Indication: Pulmonary pain
     Dosage: UNK
     Route: 065
  48. ZINC [Suspect]
     Active Substance: PYRITHIONE ZINC\ZINC\ZINC CHLORIDE
     Indication: Depression
     Dosage: UNK
     Route: 065
  49. ZINC [Suspect]
     Active Substance: PYRITHIONE ZINC\ZINC\ZINC CHLORIDE
     Indication: Abdominal discomfort
     Dosage: 750 MG
     Route: 065
  50. ZINC [Suspect]
     Active Substance: PYRITHIONE ZINC\ZINC\ZINC CHLORIDE
     Dosage: 750 MG, QD
     Route: 065
  51. LACTOBACILLUS RHAMNOSUS [Suspect]
     Active Substance: LACTOBACILLUS RHAMNOSUS
     Indication: Abdominal discomfort
     Dosage: 750 MG
     Route: 065
  52. LACTOBACILLUS RHAMNOSUS [Suspect]
     Active Substance: LACTOBACILLUS RHAMNOSUS
     Indication: Depression
     Dosage: UNK
     Route: 065
  53. BIFIDOBACTERIUM LONGUM [Suspect]
     Active Substance: BIFIDOBACTERIUM LONGUM
     Indication: Abdominal discomfort
     Dosage: UNK
     Route: 065
  54. BIFIDOBACTERIUM LONGUM [Suspect]
     Active Substance: BIFIDOBACTERIUM LONGUM
     Indication: Depression
     Dosage: 750 MG
     Route: 065
  55. ENBREL [Suspect]
     Active Substance: BENZYL ALCOHOL\ETANERCEPT
     Indication: Rheumatoid arthritis
     Dosage: UNK (MYCLIC PEN)
     Route: 065
  56. ENBREL [Suspect]
     Active Substance: BENZYL ALCOHOL\ETANERCEPT
     Dosage: 50 MG, QW (MYCLIC PEN SC)
     Route: 058
     Dates: start: 20100917
  57. ENBREL [Suspect]
     Active Substance: BENZYL ALCOHOL\ETANERCEPT
     Dosage: 50 MG, QW (MYCLIC PEN)
     Route: 065
     Dates: start: 20100917
  58. ENBREL [Suspect]
     Active Substance: BENZYL ALCOHOL\ETANERCEPT
     Dosage: 50 MG, QW (MYCLIC PEN)
     Route: 058
     Dates: start: 20210917
  59. VENLAFAXINE HYDROCHLORIDE [Suspect]
     Active Substance: VENLAFAXINE HYDROCHLORIDE
     Indication: Depression
     Dosage: 225 MG, QD
     Route: 065
  60. VENLAFAXINE HYDROCHLORIDE [Suspect]
     Active Substance: VENLAFAXINE HYDROCHLORIDE
     Indication: Rheumatoid arthritis
  61. SULFAGUANIDINE [Suspect]
     Active Substance: SULFAGUANIDINE
     Indication: Abdominal discomfort
     Dosage: 750 MG, QD
     Route: 065
  62. CHARCOAL ACTIVATED [Suspect]
     Active Substance: ACTIVATED CHARCOAL
     Indication: Product used for unknown indication
     Dosage: 750 MG
     Route: 065
  63. CHARCOAL ACTIVATED [Suspect]
     Active Substance: ACTIVATED CHARCOAL
     Dosage: 750 MG, QD
     Route: 065
  64. AMINOPHYLLINE [Suspect]
     Active Substance: AMINOPHYLLINE
     Indication: Depression
     Dosage: 400 MG, QD
     Route: 065
  65. AMINOPHYLLINE [Suspect]
     Active Substance: AMINOPHYLLINE
     Indication: Product used for unknown indication
     Dosage: 400 MG, QD
     Route: 065
     Dates: start: 20100917
  66. AMINOPHYLLINE [Suspect]
     Active Substance: AMINOPHYLLINE
     Dosage: 400 MG, QD
     Route: 065
     Dates: start: 20200917
  67. DOXYCYCLINE [Concomitant]
     Active Substance: DOXYCYCLINE
     Indication: Pituitary tumour
     Dosage: UNK
     Route: 065
  68. DOXYCYCLINE [Concomitant]
     Active Substance: DOXYCYCLINE
     Indication: Pulmonary pain
  69. FOLIC ACID [Concomitant]
     Active Substance: FOLIC ACID
     Indication: Abdominal discomfort
     Dosage: UNK
     Route: 065
  70. ACTIVATED CHARCOAL [Concomitant]
     Active Substance: ACTIVATED CHARCOAL
     Indication: Depression
     Dosage: 750 MG, QD
     Route: 065
  71. CETIRIZINE [Concomitant]
     Active Substance: CETIRIZINE HYDROCHLORIDE
     Indication: Abdominal discomfort
     Dosage: UNK, QD
     Route: 065
  72. EZETIMIBE [Concomitant]
     Active Substance: EZETIMIBE
     Indication: Depression
     Dosage: UNK
     Route: 065
  73. CABERGOLINE [Concomitant]
     Active Substance: CABERGOLINE
     Indication: Rheumatoid arthritis
     Dosage: UNK
     Route: 065
  74. CABERGOLINE [Concomitant]
     Active Substance: CABERGOLINE
     Indication: Empty sella syndrome
  75. CABERGOLINE [Concomitant]
     Active Substance: CABERGOLINE
     Indication: Pituitary tumour
  76. LEVOTHYROXINE [Concomitant]
     Active Substance: LEVOTHYROXINE\LEVOTHYROXINE SODIUM
     Indication: Pituitary tumour
     Dosage: UNK
     Route: 065
  77. LEVOTHYROXINE [Concomitant]
     Active Substance: LEVOTHYROXINE\LEVOTHYROXINE SODIUM
     Indication: Abdominal discomfort
  78. BENDROFLUMETHIAZIDE [Concomitant]
     Active Substance: BENDROFLUMETHIAZIDE
     Indication: Depression
     Dosage: UNK
     Route: 065
  79. BENDROFLUMETHIAZIDE [Concomitant]
     Active Substance: BENDROFLUMETHIAZIDE
     Indication: Pituitary tumour
     Dosage: UNK
     Route: 065
  80. BENDROFLUMETHIAZIDE [Concomitant]
     Active Substance: BENDROFLUMETHIAZIDE
     Dosage: 750 MG
     Route: 065
  81. ORUVAIL [Concomitant]
     Active Substance: KETOPROFEN
     Indication: Empty sella syndrome
     Dosage: UNK
     Route: 065

REACTIONS (12)
  - Obesity [Unknown]
  - Amyloid arthropathy [Unknown]
  - Lower respiratory tract infection [Not Recovered/Not Resolved]
  - Arthropathy [Unknown]
  - Pulmonary pain [Unknown]
  - Rash [Not Recovered/Not Resolved]
  - Abdominal discomfort [Unknown]
  - Intentional product misuse [Unknown]
  - Drug abuse [Unknown]
  - Overdose [Unknown]
  - Product dose omission issue [Unknown]
  - Off label use [Unknown]

NARRATIVE: CASE EVENT DATE: 20201001
